FAERS Safety Report 20376229 (Version 1)
Quarter: 2022Q1

REPORT INFORMATION
  Report Type: Spontaneous
  Country: US (occurrence: None)
  Receive Date: 20220125
  Receipt Date: 20220125
  Transmission Date: 20220424
  Serious: Yes (Death)
  Sender: FDA-Public Use
  Company Number: None

PATIENT
  Age: 75 Year
  Sex: Female

DRUGS (1)
  1. STELARA [Suspect]
     Active Substance: USTEKINUMAB
     Dosage: 90MG  AT WEEK 4 SUBQ?Q12 WEEKS SUBQ
     Route: 058
     Dates: start: 20211104

REACTIONS (1)
  - Death [None]

NARRATIVE: CASE EVENT DATE: 20211228
